FAERS Safety Report 7917487-X (Version None)
Quarter: 2011Q4

REPORT INFORMATION
  Report Type: 
  Country: None (occurrence: None)
  Receive Date: 20111116
  Receipt Date: 20111114
  Transmission Date: 20120403
  Serious: Yes (Other)
  Sender: FDA-Public Use
  Company Number: US-ROCHE-1013138

PATIENT

DRUGS (3)
  1. COPEGUS [Suspect]
     Indication: HEPATITIS C
     Dosage: 1000 MG/DAY FOR PATIENTS LESS THAN 75 KG AND 1200 MG/DAY FOR THOSE MORE THAN 75 LG.
     Route: 048
  2. TELAPREVIR [Suspect]
     Indication: HEPATITIS C
     Route: 065
  3. PEGINTERFERON ALFA-2A [Suspect]
     Indication: HEPATITIS C
     Route: 058

REACTIONS (22)
  - OEDEMA PERIPHERAL [None]
  - URTICARIA [None]
  - LYMPHADENOPATHY [None]
  - INJECTION SITE RASH [None]
  - FATIGUE [None]
  - DEPRESSION [None]
  - RASH [None]
  - BURSITIS INFECTIVE [None]
  - PYREXIA [None]
  - PANCYTOPENIA [None]
  - HYPOKALAEMIA [None]
  - HYPOTENSION [None]
  - PRURITUS [None]
  - ASTHENIA [None]
  - COSTOCHONDRITIS [None]
  - HEADACHE [None]
  - PLEURISY [None]
  - RHABDOMYOLYSIS [None]
  - ANAEMIA [None]
  - FACE OEDEMA [None]
  - DEHYDRATION [None]
  - PAIN [None]
